APPROVED DRUG PRODUCT: PREDNISONE
Active Ingredient: PREDNISONE
Strength: 1MG
Dosage Form/Route: TABLET;ORAL
Application: A215246 | Product #001 | TE Code: AB
Applicant: NOVITIUM PHARMA LLC
Approved: Jul 6, 2021 | RLD: No | RS: No | Type: RX